FAERS Safety Report 16882861 (Version 1)
Quarter: 2019Q4

REPORT INFORMATION
  Report Type: Spontaneous
  Country: US (occurrence: US)
  Receive Date: 20191004
  Receipt Date: 20191004
  Transmission Date: 20200122
  Serious: Yes (Other)
  Sender: FDA-Public Use
  Company Number: US-JNJFOC-20190929158

PATIENT
  Age: 1 Year
  Sex: Male
  Weight: 11.8 kg

DRUGS (3)
  1. NEUTROGENA BEACH DEFENSE WATER PLUS SUN PROTECTION SUNSCREEN BROAD SPECTRUM SPF30 [Suspect]
     Active Substance: AVOBENZONE\HOMOSALATE\OCTISALATE\OCTOCRYLENE\OXYBENZONE
     Indication: PRODUCT USED FOR UNKNOWN INDICATION
     Dosage: LIBERAL AMOUNT OFTEN
     Route: 061
     Dates: start: 20190719
  2. AMOXIL                             /00249601/ [Concomitant]
     Active Substance: AMOXICILLIN
     Indication: OTITIS MEDIA ACUTE
     Route: 048
  3. AVEENO UNSPECIFIED [Concomitant]
     Indication: DRY SKIN
     Route: 061

REACTIONS (5)
  - Photosensitivity reaction [Unknown]
  - Angioedema [Recovering/Resolving]
  - Sunburn [Unknown]
  - Dermatitis atopic [Unknown]
  - Post inflammatory pigmentation change [Not Recovered/Not Resolved]

NARRATIVE: CASE EVENT DATE: 201907
